FAERS Safety Report 5165795-0 (Version None)
Quarter: 2006Q4

REPORT INFORMATION
  Report Type: 
  Country: None (occurrence: None)
  Receive Date: 20061128
  Receipt Date: 20061120
  Transmission Date: 20070319
  Serious: Yes (Other)
  Sender: FDA-Public Use
  Company Number: 2006144282

PATIENT
  Age: 1 Month
  Sex: Male

DRUGS (1)
  1. ZYRTEC [Suspect]
     Indication: GASTROOESOPHAGEAL REFLUX DISEASE
     Dosage: 1.5 ML (0.5 ML, 3 IN 1 D), ORAL
     Route: 048
     Dates: start: 20060811, end: 20060825

REACTIONS (2)
  - DRUG INEFFECTIVE [None]
  - WRONG DRUG ADMINISTERED [None]
